FAERS Safety Report 8583952-8 (Version None)
Quarter: 2012Q3

REPORT INFORMATION
  Report Type: 
  Country: None (occurrence: None)
  Receive Date: 20120810
  Receipt Date: 20120707
  Transmission Date: 20120928
  Serious: No
  Sender: FDA-Public Use
  Company Number: US-009507513-1208USA000019

PATIENT

DRUGS (1)
  1. MIRALAX [Suspect]
     Indication: CONSTIPATION
     Dosage: UNK, BID
     Route: 048
     Dates: start: 20120707

REACTIONS (3)
  - OVERDOSE [None]
  - DRUG ADMINISTERED TO PATIENT OF INAPPROPRIATE AGE [None]
  - OFF LABEL USE [None]
